FAERS Safety Report 6795649-5 (Version None)
Quarter: 2010Q2

REPORT INFORMATION
  Report Type: 
  Country: None (occurrence: None)
  Receive Date: 20100625
  Receipt Date: 20100614
  Transmission Date: 20101027
  Serious: Yes (Hospitalization)
  Sender: FDA-Public Use
  Company Number: US-MERCK-1006USA02150

PATIENT
  Age: 62 Year
  Sex: Female

DRUGS (8)
  1. COZAAR [Suspect]
     Indication: BLOOD PRESSURE
     Route: 048
     Dates: start: 20100526, end: 20100530
  2. COZAAR [Suspect]
     Route: 048
     Dates: start: 20100613
  3. COZAAR [Suspect]
     Route: 048
     Dates: start: 20100601, end: 20100601
  4. COZAAR [Suspect]
     Route: 048
     Dates: start: 20100501
  5. PROTONIX [Concomitant]
     Route: 065
  6. CRESTOR [Concomitant]
     Route: 065
  7. FLONASE [Concomitant]
     Route: 065
  8. ZYRTEC [Concomitant]
     Route: 065

REACTIONS (5)
  - ABDOMINAL DISCOMFORT [None]
  - CHEST DISCOMFORT [None]
  - DIARRHOEA [None]
  - NAUSEA [None]
  - THROAT TIGHTNESS [None]
